FAERS Safety Report 7334104-0 (Version None)
Quarter: 2011Q1

REPORT INFORMATION
  Report Type: 
  Country: None (occurrence: None)
  Receive Date: 20110302
  Receipt Date: 20110302
  Transmission Date: 20110831
  Serious: Yes (Hospitalization)
  Sender: FDA-Public Use
  Company Number: None

PATIENT
  Age: 76 Year
  Sex: Male

DRUGS (1)
  1. RAPAFLO [Suspect]
     Indication: PROSTATOMEGALY
     Dosage: DAILY PO
     Route: 048
     Dates: start: 20100906, end: 20100909

REACTIONS (3)
  - BLOOD PRESSURE DECREASED [None]
  - TERMINAL INSOMNIA [None]
  - ATRIAL FIBRILLATION [None]
